FAERS Safety Report 4878890-8 (Version None)
Quarter: 2005Q4

REPORT INFORMATION
  Report Type: 
  Country: None (occurrence: None)
  Receive Date: 20051209
  Receipt Date: 20050512
  Transmission Date: 20060501
  Serious: Yes (Other)
  Sender: FDA-Public Use
  Company Number: USA-2003-0009323

PATIENT
  Sex: Male
  Weight: 86.2 kg

DRUGS (13)
  1. OXYCONTIN [Suspect]
     Indication: PAIN
     Dosage: 40 MG, BID, ORAL
     Route: 048
  2. CELEBREX [Concomitant]
  3. VALIUM [Concomitant]
  4. NORVASC [Concomitant]
  5. XANAX [Concomitant]
  6. DIOVAN [Concomitant]
  7. IBUPROFEN [Concomitant]
  8. ANUSOL [Concomitant]
  9. PREPARATION H [Concomitant]
  10. VALIUM [Concomitant]
  11. ALDARA [Concomitant]
  12. NAPROSYN [Concomitant]
  13. SOMA [Concomitant]

REACTIONS (22)
  - ASTHENIA [None]
  - CHILLS [None]
  - CONDITION AGGRAVATED [None]
  - DECREASED APPETITE [None]
  - DEPRESSION [None]
  - DIARRHOEA [None]
  - DRUG ABUSER [None]
  - DRUG DEPENDENCE [None]
  - DRUG WITHDRAWAL SYNDROME [None]
  - FALL [None]
  - FEELING ABNORMAL [None]
  - HAEMORRHOIDS [None]
  - HEADACHE [None]
  - HYPERHIDROSIS [None]
  - INSOMNIA [None]
  - IRRITABILITY [None]
  - NAUSEA [None]
  - NERVOUSNESS [None]
  - PAIN [None]
  - TREMOR [None]
  - VOMITING [None]
  - WEIGHT DECREASED [None]
